FAERS Safety Report 22240361 (Version 9)
Quarter: 2024Q1

REPORT INFORMATION
  Report Type: Spontaneous
  Country: US (occurrence: US)
  Receive Date: 20230421
  Receipt Date: 20240325
  Transmission Date: 20240409
  Serious: Yes (Other)
  Sender: FDA-Public Use
  Company Number: US-PFIZER INC-PV202300036562

PATIENT
  Age: 81 Year
  Sex: Female

DRUGS (4)
  1. IBRANCE [Suspect]
     Active Substance: PALBOCICLIB
     Indication: Breast cancer female
     Dosage: 100 MG
  2. IBRANCE [Suspect]
     Active Substance: PALBOCICLIB
     Dosage: 75 MG, 1X/DAY, FOR 2 WEEKS ON AND 2 WEEKS OFF
     Route: 048
  3. IBRANCE [Suspect]
     Active Substance: PALBOCICLIB
     Dosage: 75 MG, CYCLIC, 1 TABLET ORALLY DAILY, FOR 2 WEEKS ON AND 2 WEEKS OFF
     Route: 048
  4. IBRANCE [Suspect]
     Active Substance: PALBOCICLIB
     Dosage: 75 MG, CYCLIC, 1 TABLET ORALLY DAILY, FOR 3 WEEKS ON, 1 WEEK OFF
     Route: 048

REACTIONS (4)
  - Neutropenia [Unknown]
  - White blood cell count decreased [Recovering/Resolving]
  - Off label use [Unknown]
  - Product prescribing issue [Unknown]
